FAERS Safety Report 7878693-6 (Version None)
Quarter: 2011Q4

REPORT INFORMATION
  Report Type: 
  Country: None (occurrence: None)
  Receive Date: 20111020
  Receipt Date: 20110824
  Transmission Date: 20120403
  Serious: No
  Sender: FDA-Public Use
  Company Number: 2011AL000065

PATIENT
  Age: 68 Year
  Sex: Female

DRUGS (1)
  1. FOLOTYN [Suspect]
     Indication: T-CELL LYMPHOMA
     Dosage: IV
     Route: 042
     Dates: start: 20110714, end: 20110818

REACTIONS (1)
  - DISEASE PROGRESSION [None]
